FAERS Safety Report 5068866-2 (Version None)
Quarter: 2006Q3

REPORT INFORMATION
  Report Type: 
  Country: None (occurrence: None)
  Receive Date: 20060802
  Receipt Date: 20060511
  Transmission Date: 20061208
  Serious: No
  Sender: FDA-Public Use
  Company Number: US-BRISTOL-MYERS SQUIBB COMPANY-13375068

PATIENT
  Age: 72 Year
  Sex: Male
  Weight: 96 kg

DRUGS (8)
  1. COUMADIN [Suspect]
     Indication: ATRIAL FIBRILLATION
     Dosage: 7.5 MG 5 DAYS PER WEEK + 5 MG 2 DAYS PER WEEK
     Dates: start: 20060101
  2. SOTALOL HCL [Concomitant]
  3. LIPITOR [Concomitant]
  4. FOLIC ACID [Concomitant]
  5. ZETIA [Concomitant]
  6. SAW PALMETTO [Concomitant]
  7. OMEGA-3 [Concomitant]
  8. PUMPKIN SEED OIL [Concomitant]

REACTIONS (1)
  - WEIGHT INCREASED [None]
